FAERS Safety Report 5364681-0 (Version None)
Quarter: 2007Q2

REPORT INFORMATION
  Report Type: 
  Country: None (occurrence: None)
  Receive Date: 20070621
  Receipt Date: 20070614
  Transmission Date: 20071010
  Serious: Yes (Hospitalization)
  Sender: FDA-Public Use
  Company Number: PHEH2007US08859

PATIENT
  Sex: Male
  Weight: 79.365 kg

DRUGS (5)
  1. DIOVAN [Suspect]
     Indication: HYPERTENSION
     Dosage: 160 MG, QD
     Dates: end: 20060101
  2. DIOVAN [Suspect]
     Dosage: 160MG, 1/2 TAB QD
     Dates: start: 20060101
  3. LIPITOR [Concomitant]
     Indication: BLOOD CHOLESTEROL INCREASED
     Dosage: 10 MG, QD
     Dates: start: 20050101
  4. ASPIRIN [Concomitant]
     Dosage: 81MG, UNK
  5. MULTIVITAMIN [Concomitant]
     Dosage: UNK, UNK

REACTIONS (4)
  - HEART VALVE REPLACEMENT [None]
  - MITRAL VALVE DISEASE [None]
  - NAUSEA [None]
  - VASCULAR BYPASS GRAFT [None]
